FAERS Safety Report 6492379-4 (Version None)
Quarter: 2009Q4

REPORT INFORMATION
  Report Type: 
  Country: None (occurrence: None)
  Receive Date: 20091211
  Receipt Date: 20091211
  Transmission Date: 20100525
  Serious: No
  Sender: FDA-Public Use
  Company Number: None

PATIENT
  Age: 54 Year
  Sex: Male
  Weight: 68.0396 kg

DRUGS (3)
  1. ZOLPIDEM [Suspect]
     Indication: INSOMNIA
     Dosage: 20 MG AT BEDTIME ORAL
     Route: 048
     Dates: start: 20090701
  2. ZOLPIDEM [Suspect]
     Indication: SLEEP DISORDER
     Dosage: 20 MG AT BEDTIME ORAL
     Route: 048
     Dates: start: 20090701
  3. ALPRAZOLAM [Suspect]
     Indication: PANIC ATTACK
     Dosage: 1 MG AT BEDTIME ORAL
     Route: 048
     Dates: start: 20090701

REACTIONS (3)
  - ABNORMAL SLEEP-RELATED EVENT [None]
  - AMNESIA [None]
  - SOMNAMBULISM [None]
